FAERS Safety Report 5279246-9 (Version None)
Quarter: 2007Q1

REPORT INFORMATION
  Report Type: 
  Country: None (occurrence: None)
  Receive Date: 20070322
  Receipt Date: 20070306
  Transmission Date: 20070707
  Serious: Yes (Death, Hospitalization)
  Sender: FDA-Public Use
  Company Number: 8021722

PATIENT
  Age: 63 Year
  Sex: Female

DRUGS (7)
  1. KEPPRA [Suspect]
     Indication: PARTIAL SEIZURES
     Dosage: 500 MG /D PO
     Route: 048
  2. DESAMETASONE [Concomitant]
  3. WARFARIN SODIUM [Concomitant]
  4. OMEPRAZOLE [Concomitant]
  5. OFFICINAL PLANT [Concomitant]
  6. HOMEOPATIC PREPARATIONS [Concomitant]
  7. FOOD SUPPLEMENTS [Concomitant]

REACTIONS (2)
  - HEPATITIS ACUTE [None]
  - HEPATORENAL FAILURE [None]
